FAERS Safety Report 21951454 (Version 2)
Quarter: 2023Q1

REPORT INFORMATION
  Report Type: Spontaneous
  Country: US (occurrence: US)
  Receive Date: 20230203
  Receipt Date: 20230208
  Transmission Date: 20230418
  Serious: No
  Sender: FDA-Public Use
  Company Number: US-SANOFI-01473213

PATIENT
  Age: 34 Year
  Sex: Female
  Weight: 59.8 kg

DRUGS (8)
  1. AUBAGIO [Suspect]
     Active Substance: TERIFLUNOMIDE
     Indication: Multiple sclerosis
     Dosage: 1 DF, QD
     Route: 048
     Dates: start: 2017
  2. FISH OIL [Concomitant]
     Active Substance: FISH OIL
  3. KEPPRA [Concomitant]
     Active Substance: LEVETIRACETAM
  4. METHIMAZOLE [Concomitant]
     Active Substance: METHIMAZOLE
  5. PREDNISONE [Concomitant]
     Active Substance: PREDNISONE
  6. PLAQUENIL [Concomitant]
     Active Substance: HYDROXYCHLOROQUINE SULFATE
  7. VITAMIN D NOS [Concomitant]
     Active Substance: VITAMIN D NOS
  8. COENZYME Q10 [Concomitant]
     Active Substance: DIETARY SUPPLEMENT\UBIDECARENONE

REACTIONS (1)
  - Drug ineffective [Unknown]
